FAERS Safety Report 8249353-7 (Version None)
Quarter: 2012Q1

REPORT INFORMATION
  Report Type: 
  Country: None (occurrence: None)
  Receive Date: 20120327
  Receipt Date: 20120315
  Transmission Date: 20120608
  Serious: Yes (Hospitalization)
  Sender: FDA-Public Use
  Company Number: 2012SP014240

PATIENT
  Age: 17 Year
  Sex: Female
  Weight: 62.3 kg

DRUGS (2)
  1. DOXORUBICIN HCL [Suspect]
     Indication: BONE SARCOMA
     Dosage: 60 MG
     Dates: start: 20110427, end: 20111115
  2. PEGINTERFERON ALFA-2B [Suspect]
     Indication: BONE SARCOMA
     Dosage: 60 MCG
     Dates: start: 20111228, end: 20120307

REACTIONS (10)
  - TOXICITY TO VARIOUS AGENTS [None]
  - PLEURAL EFFUSION [None]
  - PALLOR [None]
  - DYSPNOEA [None]
  - LETHARGY [None]
  - TACHYCARDIA [None]
  - LOWER RESPIRATORY TRACT INFECTION [None]
  - RHINITIS [None]
  - HYPOTENSION [None]
  - CARDIAC FAILURE [None]
